FAERS Safety Report 5328835-1 (Version None)
Quarter: 2007Q2

REPORT INFORMATION
  Report Type: 
  Country: None (occurrence: None)
  Receive Date: 20070518
  Receipt Date: 20070507
  Transmission Date: 20071010
  Serious: Yes (Hospitalization)
  Sender: FDA-Public Use
  Company Number: US-ELI_LILLY_AND_COMPANY-US200701003107

PATIENT
  Age: 81 Year
  Sex: Female
  Weight: 81.632 kg

DRUGS (7)
  1. BYETTA [Suspect]
     Indication: DIABETES MELLITUS NON-INSULIN-DEPENDENT
     Dosage: 5 UG, 2/D
     Route: 058
     Dates: start: 20060727, end: 20061030
  2. BYETTA [Suspect]
     Dosage: 5 UG, 2/D
     Route: 058
     Dates: start: 20061218, end: 20070118
  3. BYETTA [Suspect]
     Dosage: 10 UG, 2/D
     Route: 058
     Dates: start: 20070118, end: 20070404
  4. GLYBURIDE [Concomitant]
     Dates: end: 20060801
  5. HYDROCHLOROTHIAZIDE [Concomitant]
  6. CARTIA XT [Concomitant]
     Dosage: 240 MG, DAILY (1/D)
  7. LESCOL [Concomitant]
     Dosage: UNK, UNKNOWN

REACTIONS (3)
  - BLOOD GLUCOSE INCREASED [None]
  - CHEST PAIN [None]
  - HYPERTENSION [None]
